FAERS Safety Report 10561599 (Version 2)
Quarter: 2014Q4

REPORT INFORMATION
  Report Type: Report from Study
  Country: BR (occurrence: BR)
  Receive Date: 20141103
  Receipt Date: 20141117
  Transmission Date: 20150529
  Serious: Yes (Hospitalization, Other)
  Sender: FDA-Public Use
  Company Number: PHHY2014BR143018

PATIENT
  Age: 62 Year
  Sex: Male
  Weight: 60 kg

DRUGS (9)
  1. ISUPREL [Suspect]
     Active Substance: ISOPROTERENOL HYDROCHLORIDE
     Indication: BRONCHITIS
     Dosage: UNK, (WHEN HE FELT SHORTNESS OF BREATH WHILE RUNNING)
     Route: 055
     Dates: start: 1964
  2. FORASEQ [Suspect]
     Active Substance: BUDESONIDE\FORMOTEROL FUMARATE
     Indication: ASTHMA
     Dosage: 1 DF, BID (1INHALATION PER DAY WITH 1 CAPSULE OF EACH TREATMENT, AT NIGHT AND ALSO IN THE MORNING IF
     Route: 055
     Dates: start: 1990
  3. DUOVENT [Suspect]
     Active Substance: FENOTEROL HYDROBROMIDE
     Indication: ASTHMA
     Dosage: UNK UNK, PRN (USES IT ALL DAY LONG, WHENEVER SHE NEEDS IT)
     Route: 055
  4. DUOVENT [Suspect]
     Active Substance: FENOTEROL HYDROBROMIDE
     Indication: DYSPNOEA
  5. ISUPREL [Suspect]
     Active Substance: ISOPROTERENOL HYDROCHLORIDE
     Indication: DYSPNOEA
  6. CARVEDILOL. [Concomitant]
     Active Substance: CARVEDILOL
     Indication: HYPERTENSION
     Dosage: 2 DF, DAILY
     Route: 048
     Dates: start: 2011
  7. FORASEQ [Suspect]
     Active Substance: BUDESONIDE\FORMOTEROL FUMARATE
     Indication: DYSPNOEA
  8. PREDNISONE. [Concomitant]
     Active Substance: PREDNISONE
     Indication: ASTHMA
     Dosage: 1 DF, QD
     Route: 048
  9. PANTOPRAZOLE SODIUM [Concomitant]
     Active Substance: PANTOPRAZOLE SODIUM
     Indication: PROPHYLAXIS
     Dosage: UNK (ON EMPTY STOMACH)
     Route: 065

REACTIONS (10)
  - Fluid retention [Recovered/Resolved]
  - Depression [Not Recovered/Not Resolved]
  - Diabetes mellitus [Recovering/Resolving]
  - Urinary tract infection [Recovered/Resolved]
  - Dyspnoea [Unknown]
  - Hypersomnia [Recovering/Resolving]
  - Cerebrovascular accident [Recovered/Resolved]
  - Malaise [Unknown]
  - Abasia [Recovering/Resolving]
  - Cachexia [Unknown]

NARRATIVE: CASE EVENT DATE: 1998
